FAERS Safety Report 4714521-5 (Version None)
Quarter: 2005Q3

REPORT INFORMATION
  Report Type: 
  Country: None (occurrence: None)
  Receive Date: 20050712
  Receipt Date: 20050630
  Transmission Date: 20060218
  Serious: Yes (Hospitalization)
  Sender: FDA-Public Use
  Company Number: 2005095143

PATIENT
  Age: 65 Year
  Sex: Male

DRUGS (1)
  1. MINOXIDIL [Suspect]
     Indication: MALE PATTERN BALDNESS
     Dosage: 1 ML / DOSE X 2, TOPICAL
     Route: 061
     Dates: start: 20041001

REACTIONS (1)
  - MYOCARDIAL INFARCTION [None]
